FAERS Safety Report 10414014 (Version 1)
Quarter: 2014Q3

REPORT INFORMATION
  Report Type: Spontaneous
  Country: US (occurrence: US)
  Receive Date: 20140827
  Receipt Date: 20140827
  Transmission Date: 20150326
  Serious: No
  Sender: FDA-Public Use
  Company Number: US-GALDERMA-US13003373

PATIENT
  Age: 60 Year
  Sex: Male

DRUGS (7)
  1. METROGEL [Suspect]
     Active Substance: METRONIDAZOLE
     Indication: ROSACEA
     Dosage: 1%
     Route: 061
     Dates: start: 2006, end: 201211
  2. CLINIQUE MOISTURIZER FOR MEN [Concomitant]
     Indication: DRY SKIN PROPHYLAXIS
     Route: 061
  3. CETAPHIL [Concomitant]
     Active Substance: AVOBENZONE\OCTOCRYLENE\TRICLOSAN
     Indication: THERAPEUTIC SKIN CARE TOPICAL
     Route: 061
  4. ORACEA [Concomitant]
     Active Substance: DOXYCYCLINE
     Indication: ROSACEA
     Dosage: 40 MG
     Route: 048
     Dates: start: 2006
  5. RETIN A (TRETINOIN)  0.1% [Concomitant]
     Indication: ACNE
     Dosage: 0.1%
     Route: 061
  6. RETIN A (TRETINOIN)  0.1% [Concomitant]
     Indication: ACNE
     Dosage: 0.4%
     Route: 061
  7. DOVE FRAGRANCE FREE SOAP [Concomitant]
     Indication: THERAPEUTIC SKIN CARE TOPICAL
     Route: 061

REACTIONS (1)
  - Acne [Recovered/Resolved]

NARRATIVE: CASE EVENT DATE: 201211
